FAERS Safety Report 8283166-5 (Version None)
Quarter: 2012Q2

REPORT INFORMATION
  Report Type: 
  Country: None (occurrence: None)
  Receive Date: 20120413
  Receipt Date: 20120409
  Transmission Date: 20120825
  Serious: Yes (Other)
  Sender: FDA-Public Use
  Company Number: CA-JNJFOC-20120404393

PATIENT
  Sex: Female

DRUGS (2)
  1. STELARA [Suspect]
     Indication: PSORIASIS
     Route: 058
     Dates: start: 20120124
  2. STELARA [Suspect]
     Route: 058
     Dates: start: 20111007

REACTIONS (1)
  - DIABETES MELLITUS [None]
